FAERS Safety Report 23648260 (Version 2)
Quarter: 2024Q1

REPORT INFORMATION
  Report Type: Spontaneous
  Country: JP (occurrence: JP)
  Receive Date: 20240319
  Receipt Date: 20240327
  Transmission Date: 20240409
  Serious: Yes (Hospitalization, Other)
  Sender: FDA-Public Use
  Company Number: JP-ARDELYX-2024ARDX000890

PATIENT
  Age: 73 Year
  Sex: Female

DRUGS (1)
  1. TENAPANOR HYDROCHLORIDE [Suspect]
     Active Substance: TENAPANOR HYDROCHLORIDE
     Indication: Product used for unknown indication
     Dosage: UNK MG
     Route: 048
     Dates: start: 20240301

REACTIONS (2)
  - Colitis [Unknown]
  - Melaena [Unknown]

NARRATIVE: CASE EVENT DATE: 20240301
